FAERS Safety Report 12630648 (Version 6)
Quarter: 2017Q4

REPORT INFORMATION
  Report Type: Spontaneous
  Country: US (occurrence: US)
  Receive Date: 20160808
  Receipt Date: 20171103
  Transmission Date: 20180320
  Serious: No
  Sender: FDA-Public Use
  Company Number: US-PFIZER INC-2016368535

PATIENT
  Age: 58 Year
  Sex: Female

DRUGS (2)
  1. IBRANCE [Suspect]
     Active Substance: PALBOCICLIB
     Dosage: 125 MG, CYCLIC (DAILY FOR 21 DAYS AND EVERY 28 DAYS)
     Route: 048
     Dates: start: 201607
  2. LETROZOLE. [Suspect]
     Active Substance: LETROZOLE
     Dosage: UNK

REACTIONS (10)
  - Nausea [Recovering/Resolving]
  - Dyspnoea [Recovering/Resolving]
  - Myalgia [Unknown]
  - White blood cell count decreased [Unknown]
  - Headache [Unknown]
  - Fatigue [Recovering/Resolving]
  - Neoplasm progression [Recovering/Resolving]
  - Arthralgia [Unknown]
  - Productive cough [Unknown]
  - Pain [Recovering/Resolving]
